FAERS Safety Report 8153986-6 (Version None)
Quarter: 2012Q1

REPORT INFORMATION
  Report Type: 
  Country: None (occurrence: None)
  Receive Date: 20120221
  Receipt Date: 20120221
  Transmission Date: 20120608
  Serious: Yes (Other)
  Sender: FDA-Public Use
  Company Number: None

PATIENT
  Sex: Female
  Weight: 90.718 kg

DRUGS (1)
  1. LOVASTATIN [Suspect]
     Indication: BLOOD CHOLESTEROL INCREASED
     Dosage: 20.0 MG
     Route: 048
     Dates: start: 20090515, end: 20120205

REACTIONS (4)
  - PAIN IN EXTREMITY [None]
  - PARAESTHESIA [None]
  - ARTHRITIS [None]
  - GAIT DISTURBANCE [None]
